FAERS Safety Report 24104379 (Version 1)
Quarter: 2024Q3

REPORT INFORMATION
  Report Type: Spontaneous
  Country: CA (occurrence: CA)
  Receive Date: 20240717
  Receipt Date: 20240717
  Transmission Date: 20241017
  Serious: Yes (Other)
  Sender: FRESENIUS KABI
  Company Number: CA-FreseniusKabi-FK202410795

PATIENT
  Age: 62 Year
  Sex: Male
  Weight: 122 kg

DRUGS (1)
  1. AMIODARONE HYDROCHLORIDE [Suspect]
     Active Substance: AMIODARONE HYDROCHLORIDE
     Indication: Atrial fibrillation
     Dosage: FORM OF ADMIN: INTRAVENOUS SOLUTION
     Route: 042

REACTIONS (3)
  - Erythema [Recovering/Resolving]
  - Induration [Recovering/Resolving]
  - Pain [Recovering/Resolving]
